FAERS Safety Report 8360967-6 (Version None)
Quarter: 2012Q2

REPORT INFORMATION
  Report Type: 
  Country: None (occurrence: None)
  Receive Date: 20120515
  Receipt Date: 20120507
  Transmission Date: 20120825
  Serious: Yes (Hospitalization, Disabling)
  Sender: FDA-Public Use
  Company Number: US-CELGENEUS-163-21880-12030385

PATIENT
  Sex: Male

DRUGS (21)
  1. IRON SULFATETHIAMIN COMPOUND TAB [Concomitant]
     Dosage: 325 MILLIGRAM
     Route: 065
  2. VITAMIN B-12 [Concomitant]
     Dosage: 1 MILLIGRAM
     Route: 058
     Dates: start: 20100601
  3. ARANESP [Concomitant]
     Route: 065
     Dates: start: 20070703, end: 20090601
  4. ANTIBIOTICS [Concomitant]
     Route: 065
     Dates: start: 20120216
  5. FERREX [Concomitant]
     Dosage: 150 MILLIGRAM
     Route: 048
  6. ARANESP [Concomitant]
     Dosage: 500 MICROGRAM
     Route: 065
     Dates: start: 20090819, end: 20091021
  7. REVLIMID [Suspect]
     Indication: MYELODYSPLASTIC SYNDROME
     Dosage: 10 MILLIGRAM
     Route: 048
     Dates: start: 20120217, end: 20120227
  8. NEXIUM [Concomitant]
     Dosage: 40 MILLIGRAM
     Route: 065
  9. ASPIRIN [Concomitant]
     Dosage: 81 MILLIGRAM
     Route: 065
  10. FUROSEMIDE [Concomitant]
     Route: 065
  11. NEUPOGEN [Concomitant]
     Dosage: 300 MICROGRAM
     Route: 065
     Dates: start: 20100601
  12. BUMETANIDE [Concomitant]
     Dosage: 2 MILLIGRAM
     Route: 048
  13. DECITABINE [Concomitant]
     Dosage: 100 MILLIGRAM/SQ. METER
     Route: 050
     Dates: start: 20110211, end: 20120113
  14. MIRALAX [Concomitant]
     Route: 065
  15. VITAMIN D [Concomitant]
     Dosage: 1000
     Route: 065
  16. FOLTX [Concomitant]
     Dosage: 2.5/25/2MG
     Route: 048
  17. MEGACE [Concomitant]
     Dosage: 625 MILLIGRAM
     Route: 065
  18. LACTULOSE [Concomitant]
     Route: 065
  19. VIDAZA [Concomitant]
     Route: 065
     Dates: start: 20120402
  20. DIGOXIN [Concomitant]
     Dosage: .125 MILLIGRAM
     Route: 048
  21. MULTI-VITAMINS [Concomitant]
     Dosage: 1 TABLET
     Route: 048

REACTIONS (2)
  - HAEMOGLOBIN DECREASED [None]
  - DYSPNOEA [None]
